FAERS Safety Report 16530692 (Version 1)
Quarter: 2019Q3

REPORT INFORMATION
  Report Type: Spontaneous
  Country: HU (occurrence: HU)
  Receive Date: 20190704
  Receipt Date: 20190704
  Transmission Date: 20191004
  Serious: Yes (Death, Life-Threatening, Hospitalization)
  Sender: FDA-Public Use
  Company Number: HU-ROCHE-2343922

PATIENT
  Age: 64 Year
  Sex: Male

DRUGS (2)
  1. OCREVUS [Suspect]
     Active Substance: OCRELIZUMAB
     Indication: PRIMARY PROGRESSIVE MULTIPLE SCLEROSIS
     Dosage: 10/JAN/2019 MOST RESENT DOSE
     Route: 042
     Dates: start: 20180718, end: 20190110
  2. AMOXICILLIN;CLAVULANIC ACID [Concomitant]
     Active Substance: AMOXICILLIN\CLAVULANIC ACID

REACTIONS (10)
  - Immobile [Recovered/Resolved]
  - Thirst decreased [Recovered/Resolved]
  - Dyspnoea [Fatal]
  - Eating disorder [Recovered/Resolved]
  - Haematochezia [Unknown]
  - Fall [Unknown]
  - Fatigue [Unknown]
  - Pulmonary embolism [Fatal]
  - Cold sweat [Fatal]
  - Haematoma [Recovered/Resolved]

NARRATIVE: CASE EVENT DATE: 201906
